FAERS Safety Report 9797583 (Version 5)
Quarter: 2014Q1

REPORT INFORMATION
  Report Type: Spontaneous
  Country: JP (occurrence: None)
  Receive Date: 20131231
  Receipt Date: 20140327
  Transmission Date: 20141002
  Serious: Yes (Life-Threatening, Hospitalization, Other)
  Sender: FDA-Public Use
  Company Number: ABR_01355_2013

PATIENT
  Age: 69 Year
  Sex: Female
  Weight: 40 kg

DRUGS (2)
  1. GLIADEL [Suspect]
     Indication: MALIGNANT GLIOMA
     Dosage: 3 DF, 1X [23.1 MG, 3 DF, ONCE] INTRACEREBRAL
     Dates: start: 20130925, end: 20131210
  2. TEMODAL [Concomitant]

REACTIONS (12)
  - Brain abscess [None]
  - Fistula [None]
  - Rash [None]
  - Staphylococcal infection [None]
  - Scar [None]
  - Pneumocephalus [None]
  - Hemiplegia [None]
  - Post procedural fistula [None]
  - Purulence [None]
  - Peptostreptococcus infection [None]
  - Bacterial infection [None]
  - Post procedural infection [None]
